FAERS Safety Report 14425057 (Version 1)
Quarter: 2018Q1

REPORT INFORMATION
  Report Type: Spontaneous
  Country: FI (occurrence: FI)
  Receive Date: 20180123
  Receipt Date: 20180123
  Transmission Date: 20180509
  Serious: Yes (Other)
  Sender: FDA-Public Use
  Company Number: FI-BAYER-2018-007594

PATIENT
  Sex: Female

DRUGS (1)
  1. STIVARGA [Suspect]
     Active Substance: REGORAFENIB
     Indication: HEPATOCELLULAR CARCINOMA
     Dosage: UNK
     Dates: start: 201610

REACTIONS (4)
  - Hyperkeratosis [Recovering/Resolving]
  - Palmar-plantar erythrodysaesthesia syndrome [None]
  - Hepatocellular carcinoma [None]
  - Influenza [None]
